FAERS Safety Report 13352398 (Version 1)
Quarter: 2017Q1

REPORT INFORMATION
  Report Type: Spontaneous
  Country: MX (occurrence: MX)
  Receive Date: 20170320
  Receipt Date: 20170320
  Transmission Date: 20170429
  Serious: Yes (Hospitalization)
  Sender: FDA-Public Use
  Company Number: MX-BAYER-2017-049328

PATIENT
  Sex: Female

DRUGS (2)
  1. QLAIRA [Suspect]
     Active Substance: DIENOGEST\ESTRADIOL VALERATE
     Dosage: UNK
     Route: 048
     Dates: start: 2016, end: 201702
  2. YASMIN 24/4 [Suspect]
     Active Substance: DROSPIRENONE\ETHINYL ESTRADIOL
     Dosage: UNK
     Route: 048
     Dates: end: 2016

REACTIONS (3)
  - Hepatic cyst [Not Recovered/Not Resolved]
  - Dysmenorrhoea [Unknown]
  - Typhoid fever [Unknown]

NARRATIVE: CASE EVENT DATE: 2016
